FAERS Safety Report 10242180 (Version 1)
Quarter: 2014Q2

REPORT INFORMATION
  Report Type: Spontaneous
  Country: BR (occurrence: BR)
  Receive Date: 20140617
  Receipt Date: 20140617
  Transmission Date: 20141212
  Serious: Yes (Other)
  Sender: FDA-Public Use
  Company Number: BR-PFIZER INC-2014161535

PATIENT
  Age: 74 Year
  Sex: Female
  Weight: 53.3 kg

DRUGS (3)
  1. XALATAN [Suspect]
     Indication: GLAUCOMA
     Dosage: 3 UG (1 DROP IN EACH EYE), 1X/DAY (AT NIGHT)
     Route: 047
     Dates: start: 20040128
  2. GLAUB [Concomitant]
     Indication: GLAUCOMA
     Dosage: 1 GTT, 2X/DAY (1 DROP IN EACH EYE, 2X/DAY)
     Dates: start: 201310
  3. SYSTANE [Concomitant]
     Indication: GLAUCOMA
     Dosage: 1 DROP IN EACH EYE, FROM 3X TO 6X/DAY
     Dates: start: 201310

REACTIONS (1)
  - Cataract [Unknown]
